FAERS Safety Report 21719965 (Version 1)
Quarter: 2022Q4

REPORT INFORMATION
  Report Type: Spontaneous
  Country: US (occurrence: US)
  Receive Date: 20221213
  Receipt Date: 20221213
  Transmission Date: 20230112
  Serious: Yes (Other)
  Sender: FDA-Public Use
  Company Number: US-ORGANON-O2212USA000522

PATIENT
  Age: 30 Year
  Sex: Female

DRUGS (1)
  1. ETHINYL ESTRADIOL\ETONOGESTREL [Suspect]
     Active Substance: ETHINYL ESTRADIOL\ETONOGESTREL
     Dosage: 1 RING, (REPORTED AS ^1 (3 RINGS)^)
     Route: 067
     Dates: start: 202212

REACTIONS (3)
  - Device expulsion [Unknown]
  - Medical device site discomfort [Unknown]
  - Product shape issue [Unknown]

NARRATIVE: CASE EVENT DATE: 20221201
